FAERS Safety Report 4312392-2 (Version None)
Quarter: 2004Q1

REPORT INFORMATION
  Report Type: 
  Country: None (occurrence: None)
  Receive Date: 20040303
  Receipt Date: 20040224
  Transmission Date: 20041129
  Serious: No
  Sender: FDA-Public Use
  Company Number: US-JNJFOC-20040204585

PATIENT
  Age: 70 Year
  Sex: Female

DRUGS (8)
  1. DURAGESIC [Suspect]
     Indication: PAIN
     Dosage: 75 UG/HR, 1 IN 72 HOUR, TRANSDERMAL
     Route: 062
     Dates: start: 20010101
  2. LIPITOR [Concomitant]
  3. VASOTEC [Concomitant]
  4. FOSAMAX [Concomitant]
  5. ISORDIL [Concomitant]
  6. LASIX [Concomitant]
  7. ALLOPURINOL [Concomitant]
  8. LANOXIN [Concomitant]

REACTIONS (2)
  - DYSKINESIA [None]
  - MOTOR DYSFUNCTION [None]
